FAERS Safety Report 6640129-0 (Version None)
Quarter: 2010Q1

REPORT INFORMATION
  Report Type: 
  Country: None (occurrence: None)
  Receive Date: 20100318
  Receipt Date: 20100309
  Transmission Date: 20100710
  Serious: Yes (Hospitalization)
  Sender: FDA-Public Use
  Company Number: US-ASTRAZENECA-2009SE24176

PATIENT
  Age: 41 Year
  Sex: Female
  Weight: 78.2 kg

DRUGS (8)
  1. CRESTOR [Suspect]
     Route: 048
     Dates: end: 20090817
  2. RANEXA [Suspect]
  3. LISINOPRIL [Concomitant]
  4. ASPIRIN [Concomitant]
  5. IMDUR [Concomitant]
  6. COREG [Concomitant]
  7. LEVOXYL [Concomitant]
  8. PLAVIX [Concomitant]

REACTIONS (8)
  - ASTHENIA [None]
  - CHEST PAIN [None]
  - COUGH [None]
  - DIZZINESS [None]
  - FATIGUE [None]
  - NO ADVERSE EVENT [None]
  - UPPER RESPIRATORY TRACT INFECTION [None]
  - VISION BLURRED [None]
